FAERS Safety Report 6019986-7 (Version None)
Quarter: 2008Q4

REPORT INFORMATION
  Report Type: 
  Country: None (occurrence: None)
  Receive Date: 20081223
  Receipt Date: 20081212
  Transmission Date: 20090506
  Serious: Yes (Hospitalization)
  Sender: FDA-Public Use
  Company Number: 233817J08USA

PATIENT
  Age: 22 Year
  Sex: Female
  Weight: 48 kg

DRUGS (5)
  1. REBIF [Suspect]
     Indication: MULTIPLE SCLEROSIS
     Dosage: 44 MCG, 3 IN 1 WEEKS, SUBCUTANEOUS
     Route: 058
     Dates: start: 20080125, end: 20080901
  2. PROZAC [Concomitant]
  3. LOESTRIN (ANOVLAR) [Concomitant]
  4. NORTRIPTYLINE HCL [Concomitant]
  5. XANAX [Concomitant]

REACTIONS (3)
  - HEART RATE IRREGULAR [None]
  - HYPOTENSION [None]
  - LOSS OF CONSCIOUSNESS [None]
